FAERS Safety Report 4368190-7 (Version None)
Quarter: 2004Q2

REPORT INFORMATION
  Report Type: 
  Country: None (occurrence: None)
  Receive Date: 20040527
  Receipt Date: 20040511
  Transmission Date: 20050107
  Serious: Yes (Hospitalization)
  Sender: FDA-Public Use
  Company Number: 2003-FF-00269FF

PATIENT
  Age: 30 Year
  Sex: Female

DRUGS (4)
  1. VIRAMUNE [Suspect]
     Indication: HIV INFECTION
     Dosage: 400 MG (200 MG, 1 IN 12 HR) PO
     Route: 048
     Dates: start: 19990601, end: 20030318
  2. ZERIT [Concomitant]
  3. VIDEX [Concomitant]
     Indication: HIV INFECTION
  4. IMOVANE  (ZOPICLONE) (TA) [Concomitant]

REACTIONS (10)
  - AMYOTROPHY [None]
  - BLOOD CREATINE PHOSPHOKINASE INCREASED [None]
  - CLONUS [None]
  - CUSHINGOID [None]
  - HYPERCHOLESTEROLAEMIA [None]
  - HYPERTRIGLYCERIDAEMIA [None]
  - HYPERTROPHY [None]
  - LIPODYSTROPHY ACQUIRED [None]
  - MITOCHONDRIAL CYTOPATHY [None]
  - MYALGIA [None]
